FAERS Safety Report 7331161-2 (Version None)
Quarter: 2011Q1

REPORT INFORMATION
  Report Type: 
  Country: None (occurrence: None)
  Receive Date: 20110304
  Receipt Date: 20110228
  Transmission Date: 20110831
  Serious: Yes (Congenital Anomaly)
  Sender: FDA-Public Use
  Company Number: BR-BRISTOL-MYERS SQUIBB COMPANY-13879622

PATIENT

DRUGS (3)
  1. STAVUDINE [Suspect]
  2. LAMIVUDINE [Suspect]
  3. NEVIRAPINE [Suspect]

REACTIONS (3)
  - PULMONARY VALVE STENOSIS [None]
  - MITRAL VALVE STENOSIS [None]
  - ATRIAL SEPTAL DEFECT [None]
